FAERS Safety Report 16792144 (Version 2)
Quarter: 2019Q3

REPORT INFORMATION
  Report Type: Spontaneous
  Country: JP (occurrence: JP)
  Receive Date: 20190910
  Receipt Date: 20190910
  Transmission Date: 20191005
  Serious: Yes (Hospitalization, Other)
  Sender: FDA-Public Use
  Company Number: JP-009507513-1906JPN003309J

PATIENT
  Age: 68 Year
  Sex: Female

DRUGS (3)
  1. ATOZET COMBINATION TABLETS LD [Suspect]
     Active Substance: ATORVASTATIN CALCIUM\EZETIMIBE
     Indication: HYPERLIPIDAEMIA
     Dosage: 1 DOSAGE FORM, QD
     Route: 048
     Dates: start: 20190511, end: 20190627
  2. VIVIANT [Concomitant]
     Active Substance: BAZEDOXIFENE
     Indication: OSTEOPOROSIS
     Dosage: 20 MILLIGRAM
     Route: 048
  3. EDIROL [Concomitant]
     Active Substance: ELDECALCITOL
     Indication: OSTEOPOROSIS
     Dosage: 0.75 MICROGRAM
     Route: 048

REACTIONS (1)
  - Autoimmune hepatitis [Unknown]

NARRATIVE: CASE EVENT DATE: 20190625
